FAERS Safety Report 6031893-2 (Version None)
Quarter: 2009Q1

REPORT INFORMATION
  Report Type: 
  Country: None (occurrence: None)
  Receive Date: 20090108
  Receipt Date: 20081231
  Transmission Date: 20090719
  Serious: Yes (Life-Threatening, Hospitalization)
  Sender: FDA-Public Use
  Company Number: CZ-TEVA-182959ISR

PATIENT
  Sex: Female

DRUGS (2)
  1. COPAXONE [Suspect]
     Indication: MULTIPLE SCLEROSIS
     Route: 058
     Dates: start: 20080804
  2. METHYLPREDNISOLONE 16MG TAB [Concomitant]
     Indication: MULTIPLE SCLEROSIS
     Route: 048

REACTIONS (3)
  - AUTOIMMUNE DISORDER [None]
  - HEPATIC FAILURE [None]
  - LIVER DISORDER [None]
